FAERS Safety Report 13183373 (Version 1)
Quarter: 2017Q1

REPORT INFORMATION
  Report Type: Spontaneous
  Country: US (occurrence: US)
  Receive Date: 20170203
  Receipt Date: 20170203
  Transmission Date: 20170428
  Serious: No
  Sender: FDA-Public Use
  Company Number: US-ASTRAZENECA-2017SE09530

PATIENT
  Sex: Female

DRUGS (8)
  1. PULMICORT TURBUHALER [Suspect]
     Active Substance: BUDESONIDE
     Dosage: TURBOHALER
     Route: 055
  2. XOPENEX [Concomitant]
     Active Substance: LEVALBUTEROL HYDROCHLORIDE
     Route: 055
  3. STEROIDS [Concomitant]
     Active Substance: UNSPECIFIED INGREDIENT
     Route: 055
  4. ANTIBIOTICS [Concomitant]
     Active Substance: UNSPECIFIED INGREDIENT
     Route: 055
  5. ANTIBIOTICS [Concomitant]
     Active Substance: UNSPECIFIED INGREDIENT
     Route: 055
  6. STEROIDS [Concomitant]
     Active Substance: UNSPECIFIED INGREDIENT
     Route: 055
  7. PULMICORT TURBUHALER [Suspect]
     Active Substance: BUDESONIDE
     Dosage: RESPULES
     Route: 055
  8. XOPENEX [Concomitant]
     Active Substance: LEVALBUTEROL HYDROCHLORIDE
     Route: 055

REACTIONS (5)
  - Off label use [Unknown]
  - Dyspnoea [Unknown]
  - Pneumonia [Unknown]
  - Malaise [Unknown]
  - Intentional product misuse [Unknown]
